FAERS Safety Report 23146750 (Version 2)
Quarter: 2023Q4

REPORT INFORMATION
  Report Type: Spontaneous
  Country: JP (occurrence: JP)
  Receive Date: 20231105
  Receipt Date: 20231116
  Transmission Date: 20240110
  Serious: Yes (Death, Hospitalization, Other)
  Sender: FDA-Public Use
  Company Number: JP-TAKEDA-2023TJP014484

PATIENT
  Age: 74 Year
  Sex: Male

DRUGS (1)
  1. NESINA [Suspect]
     Active Substance: ALOGLIPTIN BENZOATE
     Indication: Diabetes mellitus
     Dosage: 25 MILLIGRAM, QD
     Route: 048
     Dates: start: 20230117

REACTIONS (5)
  - Death [Fatal]
  - Weight decreased [Unknown]
  - Interstitial lung disease [Unknown]
  - Pyrexia [Unknown]
  - Herpes zoster [Unknown]
